FAERS Safety Report 8904628 (Version 5)
Quarter: 2014Q1

REPORT INFORMATION
  Report Type: Spontaneous
  Country: US (occurrence: US)
  Receive Date: 20121112
  Receipt Date: 20140324
  Transmission Date: 20141002
  Serious: Yes (Hospitalization, Other)
  Sender: FDA-Public Use
  Company Number: US-009507513-1211USA004414

PATIENT
  Sex: Female
  Weight: 81.18 kg

DRUGS (2)
  1. FOSAMAX [Suspect]
     Indication: OSTEOPOROSIS
     Dosage: 70 MG, UNK
     Route: 048
     Dates: start: 20011024, end: 20080205
  2. ALENDRONATE SODIUM [Suspect]
     Indication: OSTEOPOROSIS
     Dosage: 70 MG, UNK
     Dates: start: 20080330, end: 20091108

REACTIONS (23)
  - Femur fracture [Not Recovered/Not Resolved]
  - Intramedullary rod insertion [Unknown]
  - Packed red blood cell transfusion [Unknown]
  - Anaemia [Unknown]
  - Knee arthroplasty [Unknown]
  - Arthralgia [Unknown]
  - Cough [Not Recovered/Not Resolved]
  - Hypertension [Unknown]
  - Respiratory disorder [Unknown]
  - Chest pain [Unknown]
  - Transient ischaemic attack [Unknown]
  - Bursitis [Not Recovered/Not Resolved]
  - Dyslipidaemia [Unknown]
  - Hyponatraemia [Unknown]
  - Anaemia [Not Recovered/Not Resolved]
  - Fall [Unknown]
  - Osteoarthritis [Unknown]
  - Osteoarthritis [Unknown]
  - Pyrexia [Unknown]
  - Back pain [Unknown]
  - Diarrhoea [Not Recovered/Not Resolved]
  - Diarrhoea [Unknown]
  - Gastrooesophageal reflux disease [Unknown]
